FAERS Safety Report 7557733-8 (Version None)
Quarter: 2011Q2

REPORT INFORMATION
  Report Type: 
  Country: None (occurrence: None)
  Receive Date: 20110620
  Receipt Date: 20110615
  Transmission Date: 20111010
  Serious: Yes (Hospitalization, Other)
  Sender: FDA-Public Use
  Company Number: US-PFIZER INC-2010145753

PATIENT
  Sex: Female

DRUGS (4)
  1. XANAX [Suspect]
     Indication: ANXIETY
     Dosage: 0.5 MG, 4X/DAY (AS NEEDED)
     Route: 048
     Dates: start: 20090708
  2. XANAX [Suspect]
     Dosage: 0.5 MG, 3X/DAY
     Route: 048
     Dates: start: 20091119, end: 20091101
  3. XANAX [Suspect]
     Dosage: 1 MG, 3X/DAY
     Route: 048
     Dates: start: 20091101, end: 20091124
  4. XANAX [Suspect]
     Indication: SLEEP DISORDER
     Dosage: 0.25 MG, UNK
     Route: 048
     Dates: start: 20091119, end: 20091119

REACTIONS (11)
  - MAJOR DEPRESSION [None]
  - COUGH [None]
  - AFFECTIVE DISORDER [None]
  - ANXIETY [None]
  - SUICIDE ATTEMPT [None]
  - INTENTIONAL OVERDOSE [None]
  - DIARRHOEA [None]
  - PANIC ATTACK [None]
  - WEIGHT DECREASED [None]
  - ABDOMINAL PAIN [None]
  - DECREASED APPETITE [None]
